FAERS Safety Report 17939393 (Version 2)
Quarter: 2020Q3

REPORT INFORMATION
  Report Type: Report from Study
  Country: GB (occurrence: GB)
  Receive Date: 20200625
  Receipt Date: 20200902
  Transmission Date: 20201103
  Serious: Yes (Other)
  Sender: FDA-Public Use
  Company Number: GB-SAMSUNG BIOEPIS-SB-2020-19232

PATIENT
  Age: 34 Year
  Sex: Male

DRUGS (1)
  1. IMRALDI [Suspect]
     Active Substance: ADALIMUMAB
     Indication: CROHN^S DISEASE
     Dosage: WEEK 0: 160 MG (TOOK 2 DOSES OF 40 MG AND MISSED 2 DOSES OF 40 MG)
     Route: 058
     Dates: start: 20200603

REACTIONS (8)
  - Dyspnoea [Unknown]
  - Asthenia [Unknown]
  - Abdominal discomfort [Unknown]
  - Dizziness [Unknown]
  - Peripheral coldness [Unknown]
  - Confusional state [Unknown]
  - Hyperhidrosis [Unknown]
  - Discomfort [Unknown]

NARRATIVE: CASE EVENT DATE: 20200603
